FAERS Safety Report 5985871-X (Version None)
Quarter: 2008Q4

REPORT INFORMATION
  Report Type: 
  Country: None (occurrence: None)
  Receive Date: 20081209
  Receipt Date: 20081201
  Transmission Date: 20090506
  Serious: Yes (Other)
  Sender: FDA-Public Use
  Company Number: GB-RANBAXY-2008RR-19562

PATIENT
  Sex: Male
  Weight: 59 kg

DRUGS (2)
  1. CO-DYDRAMOL [Suspect]
     Indication: INFLAMMATION
     Dosage: UNK
     Route: 048
     Dates: start: 20081031
  2. CLARITHROMYCIN [Concomitant]
     Indication: INFLAMMATION
     Dosage: 500 MG, BID
     Route: 048
     Dates: start: 20081031, end: 20081106

REACTIONS (4)
  - CHEST PAIN [None]
  - FLUSHING [None]
  - HEADACHE [None]
  - HYPERHIDROSIS [None]
